FAERS Safety Report 6401573-X (Version None)
Quarter: 2009Q4

REPORT INFORMATION
  Report Type: 
  Country: None (occurrence: None)
  Receive Date: 20091013
  Receipt Date: 20091013
  Transmission Date: 20100525
  Serious: Yes (Hospitalization)
  Sender: FDA-Public Use
  Company Number: None

PATIENT
  Age: 35 Year
  Sex: Female
  Weight: 56.6996 kg

DRUGS (1)
  1. BIAXIN [Suspect]
     Indication: BRONCHITIS CHRONIC
     Dates: start: 20091007, end: 20091010

REACTIONS (5)
  - DEPRESSION [None]
  - HALLUCINATION [None]
  - INSOMNIA [None]
  - MOOD ALTERED [None]
  - SUICIDAL IDEATION [None]
